FAERS Safety Report 17929938 (Version 2)
Quarter: 2020Q3

REPORT INFORMATION
  Report Type: Spontaneous
  Country: US (occurrence: US)
  Receive Date: 20200623
  Receipt Date: 20200703
  Transmission Date: 20201103
  Serious: Yes (Other)
  Sender: FDA-Public Use
  Company Number: US-ASTRAZENECA-2020SE78040

PATIENT
  Age: 67 Year
  Sex: Female
  Weight: 90.7 kg

DRUGS (11)
  1. METOPROLOL ER [Suspect]
     Active Substance: METOPROLOL SUCCINATE
     Indication: MYOCARDIAL INFARCTION
     Dosage: 50.0MG UNKNOWN
     Route: 048
     Dates: start: 201905
  2. LORAZEPAM. [Concomitant]
     Active Substance: LORAZEPAM
     Dosage: 4.0MG UNKNOWN
  3. ESOMEPRAZOLE. [Suspect]
     Active Substance: ESOMEPRAZOLE MAGNESIUM
     Indication: DYSPEPSIA
     Dosage: 40MG BEEN ON AND OFF IT FOR YEARS
     Route: 048
  4. FLONASE [Concomitant]
     Active Substance: FLUTICASONE PROPIONATE
     Indication: POLYP
  5. ONDANSETRON [Concomitant]
     Active Substance: ONDANSETRON
     Indication: ABDOMINAL DISCOMFORT
     Dosage: 4.0MG UNKNOWN
  6. OLMESARTAN [Concomitant]
     Active Substance: OLMESARTAN
     Indication: BLOOD PRESSURE ABNORMAL
     Dosage: 20.0MG UNKNOWN
  7. METOPROLOL ER [Suspect]
     Active Substance: METOPROLOL SUCCINATE
     Indication: CEREBROVASCULAR ACCIDENT
     Dosage: 50.0MG UNKNOWN
     Route: 048
     Dates: start: 201905
  8. TYLENOL [Concomitant]
     Active Substance: ACETAMINOPHEN
     Indication: BACK PAIN
     Dosage: THREE TIMES A DAY
  9. PROAIR HFA [Concomitant]
     Active Substance: ALBUTEROL SULFATE
     Dosage: AS REQUIRED
  10. SYMBICORT [Suspect]
     Active Substance: BUDESONIDE\FORMOTEROL FUMARATE DIHYDRATE
     Indication: ASTHMA
     Dosage: 80MCG/4.5MCG, TWO PUFFS TWICE A DAY
     Route: 055
  11. CLOPIDOGREL [Concomitant]
     Active Substance: CLOPIDOGREL BISULFATE
     Indication: BLOOD CHOLESTEROL ABNORMAL
     Dosage: 75.0MG UNKNOWN

REACTIONS (9)
  - Product packaging quantity issue [Unknown]
  - Cerebrovascular accident [Unknown]
  - Dyspepsia [Unknown]
  - Blood glucose abnormal [Not Recovered/Not Resolved]
  - Wrong technique in device usage process [Not Recovered/Not Resolved]
  - Myocardial infarction [Unknown]
  - Cataract [Unknown]
  - Weight increased [Not Recovered/Not Resolved]
  - Visual impairment [Unknown]

NARRATIVE: CASE EVENT DATE: 2018
